FAERS Safety Report 23808078 (Version 2)
Quarter: 2024Q2

REPORT INFORMATION
  Report Type: Spontaneous
  Country: US (occurrence: US)
  Receive Date: 20240502
  Receipt Date: 20240628
  Transmission Date: 20240716
  Serious: No
  Sender: FDA-Public Use
  Company Number: US-MYLANLABS-2024M1032679

PATIENT
  Sex: Female

DRUGS (2)
  1. TYRVAYA [Suspect]
     Active Substance: VARENICLINE TARTRATE
     Indication: Dry eye
     Dosage: UNK, QD (ONCE A DAY)
     Route: 065
     Dates: start: 202403
  2. TYRVAYA [Suspect]
     Active Substance: VARENICLINE TARTRATE
     Dosage: 0.03 MILLIGRAM, BID (TWICE DAILY 12 HOURS)
     Route: 045
     Dates: start: 20240520

REACTIONS (3)
  - Intentional product misuse [Unknown]
  - Off label use [Unknown]
  - Product packaging quantity issue [Unknown]
